FAERS Safety Report 9016384 (Version 1)
Quarter: 2013Q1

REPORT INFORMATION
  Report Type: Spontaneous
  Country: US (occurrence: US)
  Receive Date: 20130116
  Receipt Date: 20130116
  Transmission Date: 20140127
  Serious: Yes (Death, Other)
  Sender: FDA-Public Use
  Company Number: US-ASTRAZENECA-2013SE02524

PATIENT
  Sex: Male

DRUGS (2)
  1. BRILINTA [Suspect]
     Indication: VASCULAR OCCLUSION
     Route: 048
     Dates: start: 201212
  2. ASPIRIN [Suspect]
     Route: 048

REACTIONS (2)
  - Haemorrhage intracranial [Fatal]
  - Atrial fibrillation [Unknown]
